FAERS Safety Report 12701253 (Version 3)
Quarter: 2016Q3

REPORT INFORMATION
  Report Type: Report from Study
  Country: DK (occurrence: DK)
  Receive Date: 20160831
  Receipt Date: 20160913
  Transmission Date: 20161109
  Serious: Yes (Other)
  Sender: FDA-Public Use
  Company Number: DK-ROCHE-1821907

PATIENT

DRUGS (2)
  1. BEVACIZUMAB [Suspect]
     Active Substance: BEVACIZUMAB
     Indication: OVARIAN EPITHELIAL CANCER
     Dosage: FIXED DOSE
     Route: 042
  2. NIRAPARIB [Suspect]
     Active Substance: NIRAPARIB
     Indication: OVARIAN EPITHELIAL CANCER
     Dosage: ESCALATING DOSES 100 MG, 200 MG AND 300 MG
     Route: 048

REACTIONS (3)
  - Anaemia [Unknown]
  - Thrombocytopenia [Unknown]
  - Hypertension [Unknown]
